FAERS Safety Report 15786372 (Version 1)
Quarter: 2019Q1

REPORT INFORMATION
  Report Type: Report from Study
  Country: None (occurrence: NL)
  Receive Date: 20190103
  Receipt Date: 20190103
  Transmission Date: 20190417
  Serious: Yes (Other)
  Sender: FDA-Public Use
  Company Number: NL-ABBVIE-18S-114-2584632-00

PATIENT
  Age: 3 Month
  Sex: Female
  Weight: 4.2 kg

DRUGS (4)
  1. SYNAGIS [Suspect]
     Active Substance: PALIVIZUMAB
     Indication: HEART DISEASE CONGENITAL
     Route: 050
     Dates: start: 20181129, end: 20181129
  2. SYNAGIS [Suspect]
     Active Substance: PALIVIZUMAB
     Route: 050
     Dates: start: 20181003, end: 20181003
  3. SYNAGIS [Suspect]
     Active Substance: PALIVIZUMAB
     Route: 050
     Dates: start: 20181227, end: 20181227
  4. SYNAGIS [Suspect]
     Active Substance: PALIVIZUMAB
     Route: 050
     Dates: start: 20181031, end: 20181031

REACTIONS (3)
  - Nasopharyngitis [Not Recovered/Not Resolved]
  - Cardiac operation [Unknown]
  - Nasopharyngitis [Not Recovered/Not Resolved]

NARRATIVE: CASE EVENT DATE: 20181127
